FAERS Safety Report 24134040 (Version 1)
Quarter: 2024Q3

REPORT INFORMATION
  Report Type: Spontaneous
  Country: US (occurrence: US)
  Receive Date: 20240724
  Receipt Date: 20240724
  Transmission Date: 20241017
  Serious: No
  Sender: ABBVIE
  Company Number: US-ABBVIE-5850140

PATIENT
  Sex: Female

DRUGS (1)
  1. FLUOROMETHOLONE [Suspect]
     Active Substance: FLUOROMETHOLONE
     Indication: Blepharitis
     Route: 065

REACTIONS (3)
  - Pruritus [Recovered/Resolved]
  - Blepharitis [Unknown]
  - Off label use [Unknown]
